FAERS Safety Report 16459092 (Version 2)
Quarter: 2019Q3

REPORT INFORMATION
  Report Type: Other
  Country: US (occurrence: US)
  Receive Date: 20190620
  Receipt Date: 20190717
  Transmission Date: 20191004
  Serious: Yes (Death, Other)
  Sender: FDA-Public Use
  Company Number: US-AMAG PHARMACEUTICALS, INC.-AMAG201902818

PATIENT
  Age: 0 Day
  Sex: Female

DRUGS (1)
  1. MAKENA [Suspect]
     Active Substance: HYDROXYPROGESTERONE CAPROATE
     Indication: FOETAL EXPOSURE DURING PREGNANCY
     Dosage: 275 MG/1.1ML, WEEKLY
     Route: 064
     Dates: start: 20190204, end: 20190318

REACTIONS (1)
  - Stillbirth [Fatal]

NARRATIVE: CASE EVENT DATE: 20190327
